FAERS Safety Report 5824181-8 (Version None)
Quarter: 2008Q3

REPORT INFORMATION
  Report Type: 
  Country: None (occurrence: None)
  Receive Date: 20080728
  Receipt Date: 20080717
  Transmission Date: 20090109
  Serious: Yes (Death, Hospitalization)
  Sender: FDA-Public Use
  Company Number: US-AMGEN-US289234

PATIENT
  Sex: Female

DRUGS (1)
  1. NEUPOGEN [Suspect]
     Indication: NEUTROPENIA
     Route: 065
     Dates: start: 19860101, end: 20080611

REACTIONS (5)
  - FEBRILE NEUTROPENIA [None]
  - FUNGAL SEPSIS [None]
  - INFECTION [None]
  - MYELOFIBROSIS [None]
  - PANCYTOPENIA [None]
